FAERS Safety Report 4279046-2 (Version None)
Quarter: 2004Q1

REPORT INFORMATION
  Report Type: 
  Country: None (occurrence: None)
  Receive Date: 20040122
  Receipt Date: 20040112
  Transmission Date: 20041129
  Serious: Yes (Hospitalization, Other)
  Sender: FDA-Public Use
  Company Number: 2004002277

PATIENT
  Age: 61 Year
  Sex: Female
  Weight: 58.9676 kg

DRUGS (11)
  1. LIPITOR [Suspect]
     Indication: BLOOD CHOLESTEROL INCREASED
     Dosage: 40 MG (DAILY), ORAL
     Route: 048
     Dates: end: 20020901
  2. IMIPRAMINE [Suspect]
     Indication: ILL-DEFINED DISORDER
     Dosage: ORAL
     Route: 048
  3. ISOSORBIDE (ISOSORBIDE) [Concomitant]
  4. METOPROLOL SUCCINATE [Concomitant]
  5. LANSOPRAZOLE [Concomitant]
  6. CITALOPRAM (CITALOPRAM) [Concomitant]
  7. AMITRIPTYLINE HCL [Concomitant]
  8. ALPRAZOLAM [Concomitant]
  9. FLUTICASONE PROPIONATE [Concomitant]
  10. AZELASTINE (AZELASTINE) [Concomitant]
  11. TRANDOLAPRIL (TRANDOLAPRIL) [Concomitant]

REACTIONS (12)
  - ARTHRITIS [None]
  - ASTHENIA [None]
  - BLOOD ALKALINE PHOSPHATASE INCREASED [None]
  - BLOOD CHOLESTEROL INCREASED [None]
  - FALL [None]
  - FIBROMYALGIA [None]
  - GALLBLADDER OPERATION [None]
  - HYPERSOMNIA [None]
  - LIVER DISORDER [None]
  - RHABDOMYOLYSIS [None]
  - SINUSITIS [None]
  - URINE OUTPUT DECREASED [None]
